FAERS Safety Report 14326456 (Version 1)
Quarter: 2017Q4

REPORT INFORMATION
  Report Type: Report from Study
  Country: US (occurrence: US)
  Receive Date: 20171227
  Receipt Date: 20171227
  Transmission Date: 20180321
  Serious: Yes (Other)
  Sender: FDA-Public Use
  Company Number: US-UCBSA-2017052060

PATIENT
  Sex: Female

DRUGS (2)
  1. LEVETIRACETAM. [Suspect]
     Active Substance: LEVETIRACETAM
     Indication: SEIZURE
     Dosage: UNK
  2. CANNABIS [Suspect]
     Active Substance: CANNABIS SATIVA SUBSP. INDICA TOP
     Indication: SEIZURE
     Dosage: UNK

REACTIONS (4)
  - Substance use [Unknown]
  - Pregnancy [Unknown]
  - Seizure [Unknown]
  - Drug ineffective [Unknown]
